FAERS Safety Report 26170070 (Version 1)
Quarter: 2025Q4

REPORT INFORMATION
  Report Type: Spontaneous
  Country: US (occurrence: US)
  Receive Date: 20251217
  Receipt Date: 20251217
  Transmission Date: 20260119
  Serious: Yes (Other)
  Sender: MALLINCKRODT
  Company Number: US-MALLINCKRODT-MNK202507960

PATIENT
  Age: 38 Year
  Sex: Male

DRUGS (6)
  1. NITRIC OXIDE [Suspect]
     Active Substance: NITRIC OXIDE
     Indication: Respiratory failure
     Dosage: UNKNOWN
     Route: 055
  2. METHYLPREDNISOLONE [Concomitant]
     Active Substance: METHYLPREDNISOLONE
     Dosage: UNKNOWN (HIGH DOSE)
  3. IMATINIB [Concomitant]
     Active Substance: IMATINIB
     Dosage: UNKNOWN
  4. ZOSYN [Concomitant]
     Active Substance: PIPERACILLIN SODIUM\TAZOBACTAM SODIUM
     Dosage: UNKNOWN
  5. VANCOMYCIN [Concomitant]
     Active Substance: VANCOMYCIN
     Dosage: UNKNOWN
  6. BACTRIM [Concomitant]
     Active Substance: SULFAMETHOXAZOLE\TRIMETHOPRIM
     Dosage: UNKNOWN

REACTIONS (9)
  - Renal injury [Unknown]
  - Haemothorax [Unknown]
  - Shock haemorrhagic [Unknown]
  - Right ventricular failure [Unknown]
  - Cardiogenic shock [Unknown]
  - Pleural effusion [Unknown]
  - Hypervolaemia [Unknown]
  - Product use issue [Unknown]
  - Product use in unapproved indication [Unknown]
